FAERS Safety Report 12252971 (Version 1)
Quarter: 2016Q2

REPORT INFORMATION
  Report Type: Spontaneous
  Country: None (occurrence: None)
  Receive Date: 20160408
  Receipt Date: 20160408
  Transmission Date: 20160815
  Serious: No
  Sender: FDA-Public Use
  Company Number: None

PATIENT
  Age: 68 Year
  Sex: Female
  Weight: 84.4 kg

DRUGS (26)
  1. PLAQUENIL [Concomitant]
     Active Substance: HYDROXYCHLOROQUINE SULFATE
  2. RHEUMATREX [Concomitant]
     Active Substance: METHOTREXATE SODIUM
  3. PRILOSEC [Concomitant]
     Active Substance: OMEPRAZOLE MAGNESIUM
  4. PAXIL [Concomitant]
     Active Substance: PAROXETINE HYDROCHLORIDE
  5. DEFINITY [Suspect]
     Active Substance: PERFLUTREN
     Indication: CARDIAC STRESS TEST
     Route: 040
     Dates: start: 20160407, end: 20160407
  6. ADVAIR HFA [Concomitant]
     Active Substance: FLUTICASONE PROPIONATE\SALMETEROL XINAFOATE
  7. CALCITRIOL. [Concomitant]
     Active Substance: CALCITRIOL
  8. FLEXERIL [Concomitant]
     Active Substance: CYCLOBENZAPRINE HYDROCHLORIDE
  9. NEURONTIN [Concomitant]
     Active Substance: GABAPENTIN
  10. ATIVAN [Concomitant]
     Active Substance: LORAZEPAM
  11. ASCORBIC ACID. [Concomitant]
     Active Substance: ASCORBIC ACID
  12. FENTANYL TRANSDERMAL SYSTEM [Concomitant]
     Active Substance: FENTANYL
  13. CRESTOR [Concomitant]
     Active Substance: ROSUVASTATIN CALCIUM
  14. HYDRODIURIL [Concomitant]
     Active Substance: HYDROCHLOROTHIAZIDE
  15. ATROVENT [Concomitant]
     Active Substance: IPRATROPIUM BROMIDE
  16. OXYCODONE [Concomitant]
     Active Substance: OXYCODONE
  17. REQUIP [Concomitant]
     Active Substance: ROPINIROLE HYDROCHLORIDE
  18. NORVASC [Concomitant]
     Active Substance: AMLODIPINE BESYLATE
  19. PREDNISONE. [Concomitant]
     Active Substance: PREDNISONE
  20. PROAIR HFA [Concomitant]
     Active Substance: ALBUTEROL SULFATE
  21. OSCAL [Concomitant]
     Active Substance: CALCIUM CARBONATE
  22. FOLIC ACID. [Suspect]
     Active Substance: FOLIC ACID
  23. HUMIRA [Concomitant]
     Active Substance: ADALIMUMAB
  24. TUMS [Concomitant]
     Active Substance: CALCIUM CARBONATE
  25. VITAMIN B12 [Concomitant]
     Active Substance: CYANOCOBALAMIN
  26. VITAMIN D2 [Concomitant]
     Active Substance: ERGOCALCIFEROL

REACTIONS (1)
  - Back pain [None]

NARRATIVE: CASE EVENT DATE: 20160407
